FAERS Safety Report 15027739 (Version 1)
Quarter: 2018Q2

REPORT INFORMATION
  Report Type: Spontaneous
  Country: US (occurrence: US)
  Receive Date: 20180619
  Receipt Date: 20180619
  Transmission Date: 20180711
  Serious: No
  Sender: FDA-Public Use
  Company Number: US-PFIZER INC-2018245110

PATIENT
  Sex: Female

DRUGS (1)
  1. LIPITOR [Suspect]
     Active Substance: ATORVASTATIN CALCIUM
     Dosage: 20 MG, UNK (FOR 2 WEEKS)

REACTIONS (7)
  - Insomnia [Unknown]
  - Muscle twitching [Unknown]
  - Hypoaesthesia oral [Unknown]
  - Tic [Unknown]
  - Feeling abnormal [Unknown]
  - Anxiety [Unknown]
  - Condition aggravated [Unknown]
